FAERS Safety Report 8764510 (Version 4)
Quarter: 2012Q4

REPORT INFORMATION
  Report Type: 
  Country: US (occurrence: US)
  Receive Date: 20120831
  Receipt Date: 20121109
  Transmission Date: 20130627
  Serious: Yes (Other)
  Sender: FDA-Public Use
  Company Number: US-009507513-1208USA012018

PATIENT
  Age: 59 Year
  Sex: Female
  Weight: 57.14 kg

DRUGS (7)
  1. ZETIA [Suspect]
     Indication: BLOOD CHOLESTEROL INCREASED
     Dosage: 10 mg, qd
     Route: 048
     Dates: start: 20120819, end: 20120819
  2. ZETIA [Suspect]
     Indication: HYPERLIPIDAEMIA
  3. ZOLPIDEM TARTRATE [Concomitant]
     Dosage: 10 mg, prn
     Dates: start: 20120723
  4. PYRIDOSTIGMINE BROMIDE [Concomitant]
     Dosage: 60 mg, UNK
  5. PROVIGIL [Concomitant]
     Dosage: 100 mg, qd
     Dates: start: 20120723
  6. FLUOXETINE [Concomitant]
     Dosage: 20 mg, qd
     Dates: start: 20120723
  7. AZITHROMYCIN [Concomitant]
     Dosage: 50 mg, bid
     Dates: start: 20120723

REACTIONS (4)
  - Myasthenia gravis [Recovered/Resolved]
  - Swollen tongue [Recovered/Resolved]
  - Dyspnoea [Recovered/Resolved]
  - Dysphagia [Recovered/Resolved]
